FAERS Safety Report 10037150 (Version 1)
Quarter: 2014Q1

REPORT INFORMATION
  Report Type: Spontaneous
  Country: FR (occurrence: FR)
  Receive Date: 20140326
  Receipt Date: 20140326
  Transmission Date: 20141002
  Serious: Yes (Hospitalization, Other)
  Sender: FDA-Public Use
  Company Number: FR-009507513-1403FRA008271

PATIENT
  Age: 54 Year
  Sex: Male

DRUGS (5)
  1. NORSET [Suspect]
     Route: 048
  2. THERALENE [Suspect]
     Route: 048
  3. LEPTICUR [Suspect]
     Route: 048
  4. SERESTA [Suspect]
     Route: 048
  5. ATARAX (ALPRAZOLAM) [Suspect]
     Route: 048

REACTIONS (1)
  - Loss of consciousness [Recovered/Resolved]
